FAERS Safety Report 13989819 (Version 1)
Quarter: 2017Q3

REPORT INFORMATION
  Report Type: Spontaneous
  Country: US (occurrence: US)
  Receive Date: 20170920
  Receipt Date: 20170920
  Transmission Date: 20171128
  Serious: No
  Sender: FDA-Public Use
  Company Number: US-TEVA-760358ACC

PATIENT
  Sex: Female

DRUGS (2)
  1. CYCLOBENZAPRINE. [Suspect]
     Active Substance: CYCLOBENZAPRINE
     Route: 065
  2. LYRICA [Suspect]
     Active Substance: PREGABALIN
     Indication: NERVE INJURY
     Route: 065

REACTIONS (9)
  - Dyspnoea [Unknown]
  - Heart rate increased [Unknown]
  - Pain [Unknown]
  - Stress [Unknown]
  - Breast pain [Unknown]
  - Emotional disorder [Unknown]
  - Panic reaction [Unknown]
  - Depression [Unknown]
  - Blood prolactin increased [Unknown]
